FAERS Safety Report 5416230-6 (Version None)
Quarter: 2007Q3

REPORT INFORMATION
  Report Type: 
  Country: None (occurrence: None)
  Receive Date: 20070718
  Receipt Date: 20070201
  Transmission Date: 20080115
  Serious: Yes (Hospitalization, Other)
  Sender: FDA-Public Use
  Company Number: 2007010096

PATIENT
  Sex: Male

DRUGS (3)
  1. CELEBREX [Suspect]
     Indication: ARTHRITIS
     Dates: start: 20000427, end: 20001201
  2. BEXTRA [Suspect]
     Dates: start: 20020806
  3. VIOXX [Suspect]
     Dates: start: 20010119, end: 20020701

REACTIONS (1)
  - ACUTE MYOCARDIAL INFARCTION [None]
